FAERS Safety Report 20314829 (Version 1)
Quarter: 2022Q1

REPORT INFORMATION
  Report Type: Spontaneous
  Country: US (occurrence: None)
  Receive Date: 20220110
  Receipt Date: 20220110
  Transmission Date: 20220424
  Serious: No
  Sender: FDA-Public Use
  Company Number: US-ROCHE-2898201

PATIENT
  Sex: Female

DRUGS (4)
  1. RITUXAN [Suspect]
     Active Substance: RITUXIMAB
     Indication: Multiple sclerosis
     Dosage: STRENGTH 10 MG/ML
     Route: 041
     Dates: start: 20201006
  2. ACTEMRA [Suspect]
     Active Substance: TOCILIZUMAB
     Indication: Multiple sclerosis
     Dosage: STRENGTH: 162 MG/0.9 M
     Route: 058
     Dates: start: 20201130
  3. ACTEMRA [Suspect]
     Active Substance: TOCILIZUMAB
  4. ACTEMRA [Suspect]
     Active Substance: TOCILIZUMAB

REACTIONS (2)
  - Dizziness [Recovering/Resolving]
  - Hypotension [Recovered/Resolved]
